FAERS Safety Report 25087791 (Version 1)
Quarter: 2025Q1

REPORT INFORMATION
  Report Type: Spontaneous
  Country: US (occurrence: US)
  Receive Date: 20250318
  Receipt Date: 20250318
  Transmission Date: 20250408
  Serious: No
  Sender: EMD SERONO INC
  Company Number: US-Merck Healthcare KGaA-2025012392

PATIENT
  Age: 72 Year
  Sex: Female

DRUGS (1)
  1. MAVENCLAD [Suspect]
     Active Substance: CLADRIBINE
     Indication: Multiple sclerosis
     Dosage: FIRST YEAR FIRST MONTH THERAPY
     Dates: start: 20250203, end: 20250206

REACTIONS (1)
  - Lymphocyte count decreased [Unknown]

NARRATIVE: CASE EVENT DATE: 20250305
